FAERS Safety Report 10240033 (Version 1)
Quarter: 2014Q2

REPORT INFORMATION
  Report Type: Spontaneous
  Country: GB (occurrence: GB)
  Receive Date: 20140617
  Receipt Date: 20140617
  Transmission Date: 20141212
  Serious: Yes (Other)
  Sender: FDA-Public Use
  Company Number: GB-ROCHE-1418732

PATIENT
  Sex: Male

DRUGS (1)
  1. HERCEPTIN [Suspect]
     Indication: OESOPHAGEAL CARCINOMA
     Route: 065

REACTIONS (2)
  - Metastases to lymph nodes [Unknown]
  - Oesophageal cancer metastatic [Unknown]
